FAERS Safety Report 17796267 (Version 3)
Quarter: 2025Q3

REPORT INFORMATION
  Report Type: Report from Study
  Country: EU (occurrence: EU)
  Receive Date: 20200517
  Receipt Date: 20250704
  Transmission Date: 20251020
  Serious: Yes (Death, Other)
  Sender: NOVARTIS
  Company Number: None

PATIENT
  Age: 79 Year
  Sex: Male

DRUGS (2)
  1. ZOMETA [Suspect]
     Active Substance: ZOLEDRONIC ACID
     Indication: Product used for unknown indication
     Dosage: 1 DF, Q4W (4 MG/100ML) (INFUSION)
     Route: 042
     Dates: start: 20200316
  2. ZOMETA [Suspect]
     Active Substance: ZOLEDRONIC ACID
     Dosage: 1 DF, Q4W (4 MG/100ML) (INFUSION)
     Route: 042
     Dates: start: 20200420

REACTIONS (6)
  - Death [Fatal]
  - Pelvic neoplasm [Unknown]
  - Fall [Unknown]
  - Pelvic fracture [Not Recovered/Not Resolved]
  - Bone pain [Unknown]
  - General physical health deterioration [Unknown]

NARRATIVE: CASE EVENT DATE: 20200324
